FAERS Safety Report 21895147 (Version 1)
Quarter: 2023Q1

REPORT INFORMATION
  Report Type: Spontaneous
  Country: US (occurrence: US)
  Receive Date: 20230122
  Receipt Date: 20230122
  Transmission Date: 20230417
  Serious: No
  Sender: FDA-Public Use
  Company Number: US-ELI_LILLY_AND_COMPANY-US202301003450

PATIENT
  Age: 35 Year
  Sex: Female

DRUGS (2)
  1. LYUMJEV [Suspect]
     Active Substance: INSULIN LISPRO-AABC
     Indication: Product used for unknown indication
     Dosage: 26 U, PRN, SOMETHING SHE WOULD NEED ADDITIONALE 5-6 UNITS
     Route: 065
  2. LYUMJEV [Suspect]
     Active Substance: INSULIN LISPRO-AABC
     Dosage: 26 U, PRN, SOMETHING SHE WOULD NEED ADDITIONALE 5-6 UNITS
     Route: 065
     Dates: end: 20230106

REACTIONS (2)
  - Blood glucose increased [Recovered/Resolved]
  - Drug ineffective [Unknown]

NARRATIVE: CASE EVENT DATE: 20221229
